FAERS Safety Report 6347496-6 (Version None)
Quarter: 2009Q3

REPORT INFORMATION
  Report Type: 
  Country: None (occurrence: None)
  Receive Date: 20090910
  Receipt Date: 20090903
  Transmission Date: 20100115
  Serious: Yes (Other)
  Sender: FDA-Public Use
  Company Number: US-ELI_LILLY_AND_COMPANY-US200909001084

PATIENT
  Sex: Female

DRUGS (6)
  1. HUMALOG [Suspect]
     Dosage: UNK, UNK
     Dates: start: 20080101
  2. HUMALOG [Suspect]
     Dosage: UNK, UNKNOWN
  3. HUMALOG [Suspect]
     Dosage: UNK, UNK
     Dates: start: 20040101, end: 20080101
  4. SIMVASTATIN [Concomitant]
     Indication: BLOOD CHOLESTEROL
  5. VITAMIN D [Concomitant]
  6. LISINOPRIL [Concomitant]
     Indication: BLOOD PRESSURE

REACTIONS (6)
  - AMNESIA [None]
  - BLOOD GLUCOSE INCREASED [None]
  - EYE HAEMORRHAGE [None]
  - INCORRECT DOSE ADMINISTERED [None]
  - POOR QUALITY DRUG ADMINISTERED [None]
  - VISUAL ACUITY REDUCED [None]
